FAERS Safety Report 5952619-4 (Version None)
Quarter: 2008Q4

REPORT INFORMATION
  Report Type: 
  Country: None (occurrence: None)
  Receive Date: 20081031
  Receipt Date: 20080730
  Transmission Date: 20090506
  Serious: Yes (Other)
  Sender: FDA-Public Use
  Company Number: US-WYE-H05309108

PATIENT
  Age: 74 Year
  Sex: Female
  Weight: 72.64 kg

DRUGS (1)
  1. PREMARIN [Suspect]
     Indication: VULVOVAGINAL MYCOTIC INFECTION
     Dosage: ONE INCH ONCE A WEEK, VAGINAL
     Route: 067
     Dates: start: 20030101

REACTIONS (7)
  - BREAST TENDERNESS [None]
  - FLUID RETENTION [None]
  - HYPOAESTHESIA [None]
  - INAPPROPRIATE SCHEDULE OF DRUG ADMINISTRATION [None]
  - JOINT SWELLING [None]
  - MYOCARDIAL INFARCTION [None]
  - PAIN IN EXTREMITY [None]
